FAERS Safety Report 14597085 (Version 2)
Quarter: 2018Q2

REPORT INFORMATION
  Report Type: Spontaneous
  Country: NL (occurrence: NL)
  Receive Date: 20180305
  Receipt Date: 20180425
  Transmission Date: 20180711
  Serious: Yes (Hospitalization)
  Sender: FDA-Public Use
  Company Number: NL-UCBSA-2018008076

PATIENT
  Age: 3 Year
  Sex: Male

DRUGS (1)
  1. METHYLPHENIDATE HYDROCHLORIDE. [Suspect]
     Active Substance: METHYLPHENIDATE HYDROCHLORIDE
     Indication: PRODUCT USED FOR UNKNOWN INDICATION
     Dosage: 3.6MG/KG MODERATE RELEASE
     Route: 048

REACTIONS (4)
  - Toxicity to various agents [Unknown]
  - Body temperature increased [Unknown]
  - Hypertension [Unknown]
  - Off label use [Unknown]
